FAERS Safety Report 13079773 (Version 1)
Quarter: 2017Q1

REPORT INFORMATION
  Report Type: Spontaneous
  Country: US (occurrence: US)
  Receive Date: 20170103
  Receipt Date: 20170103
  Transmission Date: 20170428
  Serious: Yes (Hospitalization, Other)
  Sender: FDA-Public Use
  Company Number: US-AUROBINDO-AUR-APL-2014-04105

PATIENT
  Age: 35 Year
  Sex: Male

DRUGS (2)
  1. LIDOCAINE HYDROCHLORIDE INJECTION USP (AMPULES) 1%(10MG/ML) [Suspect]
     Active Substance: LIDOCAINE HYDROCHLORIDE
     Indication: NERVE BLOCK
     Dosage: UNK UNK,UNK,
     Route: 065
  2. BUPIVACAINE HYDROCHLORIDE INJECTION USP 0.25% (2.5 MG/ML)(10 ML + 30 M [Suspect]
     Active Substance: BUPIVACAINE HYDROCHLORIDE
     Indication: NERVE BLOCK
     Dosage: UNK UNK,UNK,
     Route: 065

REACTIONS (6)
  - Stress cardiomyopathy [Recovering/Resolving]
  - Myocardial depression [Recovering/Resolving]
  - Pulmonary oedema [Recovering/Resolving]
  - Sinus tachycardia [Recovering/Resolving]
  - Loss of consciousness [Recovering/Resolving]
  - Ventricular hypokinesia [Recovering/Resolving]
